FAERS Safety Report 7631887-7 (Version None)
Quarter: 2011Q3

REPORT INFORMATION
  Report Type: 
  Country: None (occurrence: None)
  Receive Date: 20110725
  Receipt Date: 20110503
  Transmission Date: 20111222
  Serious: Yes (Other)
  Sender: FDA-Public Use
  Company Number: US-BRISTOL-MYERS SQUIBB COMPANY-15716715

PATIENT
  Sex: Female

DRUGS (6)
  1. LOVAZA [Concomitant]
  2. SYNTHROID [Concomitant]
     Dosage: ALTERNATE 150 MCG
  3. COUMADIN [Suspect]
     Indication: ATRIAL FIBRILLATION
     Dosage: ALSO TAKE 2 COUMADIN 5MG ON THURSDAY,10 MG MON, 7.5MG TUESDAY
     Dates: start: 20110412
  4. DIOVAN [Concomitant]
  5. VITAMIN D [Concomitant]
  6. TRANDATE [Concomitant]
     Indication: DIABETES MELLITUS

REACTIONS (2)
  - INTERNATIONAL NORMALISED RATIO INCREASED [None]
  - CONTUSION [None]
